FAERS Safety Report 18819643 (Version 1)
Quarter: 2021Q1

REPORT INFORMATION
  Report Type: Spontaneous
  Country: ES (occurrence: ES)
  Receive Date: 20210201
  Receipt Date: 20210201
  Transmission Date: 20210419
  Serious: Yes (Other)
  Sender: FDA-Public Use
  Company Number: ES-ENDO PHARMACEUTICALS INC-2021-000743

PATIENT
  Age: 56 Year
  Sex: Female

DRUGS (1)
  1. DUTASTERIDE AND TAMSULOSIN HYDROCHLORIDE [Suspect]
     Active Substance: DUTASTERIDE\TAMSULOSIN HYDROCHLORIDE
     Indication: ANDROGENETIC ALOPECIA
     Dosage: 0.5 MG, TIW
     Route: 048

REACTIONS (2)
  - Off label use [Recovered/Resolved]
  - Erythema annulare [Recovered/Resolved]
